FAERS Safety Report 24671039 (Version 2)
Quarter: 2025Q2

REPORT INFORMATION
  Report Type: Spontaneous
  Country: CN (occurrence: CN)
  Receive Date: 20241127
  Receipt Date: 20250608
  Transmission Date: 20250717
  Serious: Yes (Death, Other)
  Sender: COHERUS
  Company Number: CN-SHANGHAI JUNSHI BIOSCIENCES CO., LTD.-CN2024012196

PATIENT

DRUGS (1)
  1. TORIPALIMAB [Suspect]
     Active Substance: TORIPALIMAB
     Indication: Renal cell carcinoma

REACTIONS (3)
  - Death [Fatal]
  - Immune-mediated myocarditis [Unknown]
  - Immune-mediated myositis [Unknown]
